FAERS Safety Report 8113820-7 (Version None)
Quarter: 2012Q1

REPORT INFORMATION
  Report Type: 
  Country: None (occurrence: None)
  Receive Date: 20120203
  Receipt Date: 20120120
  Transmission Date: 20120608
  Serious: Yes (Hospitalization, Other)
  Sender: FDA-Public Use
  Company Number: PHFR2011IE007179

PATIENT
  Sex: Male

DRUGS (1)
  1. CLOZARIL [Suspect]
     Indication: SCHIZOPHRENIA
     Route: 048
     Dates: start: 20111121, end: 20111214

REACTIONS (11)
  - UPPER RESPIRATORY TRACT INFECTION [None]
  - TROPONIN INCREASED [None]
  - MALAISE [None]
  - TONSILLITIS [None]
  - PYREXIA [None]
  - FATIGUE [None]
  - MYOCARDITIS [None]
  - WHITE BLOOD CELL COUNT INCREASED [None]
  - BODY TEMPERATURE INCREASED [None]
  - TACHYCARDIA [None]
  - PHARYNGITIS [None]
